FAERS Safety Report 9904711 (Version 2)
Quarter: 2014Q1

REPORT INFORMATION
  Report Type: Spontaneous
  Country: US (occurrence: US)
  Receive Date: 20140218
  Receipt Date: 20140312
  Transmission Date: 20141002
  Serious: Yes (Hospitalization)
  Sender: FDA-Public Use
  Company Number: US-SA-2014SA018120

PATIENT
  Age: 17 Year
  Sex: Male

DRUGS (1)
  1. CEREZYME [Suspect]
     Indication: GAUCHER^S DISEASE
     Dosage: DOSE:4400 UNIT(S)
     Route: 042
     Dates: start: 20100413

REACTIONS (1)
  - Pulmonary congestion [Unknown]
